FAERS Safety Report 15877037 (Version 2)
Quarter: 2019Q1

REPORT INFORMATION
  Report Type: Report from Study
  Country: None (occurrence: GB)
  Receive Date: 20190128
  Receipt Date: 20190130
  Transmission Date: 20190417
  Serious: Yes (Hospitalization)
  Sender: FDA-Public Use
  Company Number: GB-ABBVIE-19S-167-2639552-00

PATIENT
  Sex: Male
  Weight: 109 kg

DRUGS (1)
  1. DUODOPA [Suspect]
     Active Substance: CARBIDOPA\LEVODOPA
     Indication: PARKINSON^S DISEASE
     Dosage: CASSETTE 5MG/1ML 20MG/1ML DAILY
     Route: 050

REACTIONS (2)
  - Confusional state [Unknown]
  - Malaise [Unknown]
